FAERS Safety Report 5275859-9 (Version None)
Quarter: 2007Q1

REPORT INFORMATION
  Report Type: 
  Country: None (occurrence: None)
  Receive Date: 20061213
  Receipt Date: 20040917
  Transmission Date: 20070707
  Serious: Yes (Hospitalization)
  Sender: FDA-Public Use
  Company Number: 2004UW19500

PATIENT
  Age: 20 Year
  Sex: Male
  Weight: 117.9352 kg

DRUGS (6)
  1. SEROQUEL [Suspect]
     Indication: SCHIZOPHRENIA
     Dosage: 2 DF HS PO
     Route: 048
     Dates: start: 20040728, end: 20040827
  2. SEROQUEL [Suspect]
     Indication: SCHIZOPHRENIA
     Dosage: 3 DF HS PO
     Route: 048
     Dates: start: 20040828, end: 20040101
  3. RISPERDAL [Concomitant]
  4. HALOPERIDOL [Concomitant]
  5. LOTREL [Concomitant]
  6. CATAPRES [Concomitant]

REACTIONS (2)
  - DIABETES MELLITUS [None]
  - VOMITING [None]
